FAERS Safety Report 25158991 (Version 2)
Quarter: 2025Q2

REPORT INFORMATION
  Report Type: Spontaneous
  Country: US (occurrence: US)
  Receive Date: 20250404
  Receipt Date: 20250410
  Transmission Date: 20250716
  Serious: Yes (Life-Threatening, Other)
  Sender: DR REDDYS
  Company Number: US-DRL-USA-USA/2025/04/005024

PATIENT
  Age: 64 Year
  Sex: Female

DRUGS (6)
  1. COLCHICINE [Suspect]
     Active Substance: COLCHICINE
     Indication: Myopericarditis
  2. COLCHICINE [Suspect]
     Active Substance: COLCHICINE
     Indication: Influenza
  3. ASPIRIN [Concomitant]
     Active Substance: ASPIRIN
     Indication: Myopericarditis
  4. ASPIRIN [Concomitant]
     Active Substance: ASPIRIN
     Indication: Influenza
  5. OSELTAMIVIR [Concomitant]
     Active Substance: OSELTAMIVIR
     Indication: Myopericarditis
  6. OSELTAMIVIR [Concomitant]
     Active Substance: OSELTAMIVIR
     Indication: Influenza

REACTIONS (1)
  - Drug ineffective for unapproved indication [Unknown]
